FAERS Safety Report 9370834 (Version 1)
Quarter: 2013Q2

REPORT INFORMATION
  Report Type: Spontaneous
  Country: US (occurrence: US)
  Receive Date: 20130626
  Receipt Date: 20130626
  Transmission Date: 20140414
  Serious: Yes (Death)
  Sender: FDA-Public Use
  Company Number: US-TEVA-415194USA

PATIENT
  Age: 50 Year
  Sex: Female
  Weight: 109.41 kg

DRUGS (13)
  1. PROAIR HFA [Suspect]
     Indication: BRONCHOSPASM
     Dosage: 2 PUFFS EVERY 4 HOURS
  2. PROAIR HFA [Suspect]
     Indication: ASTHMA
  3. PROAIR HFA [Suspect]
     Indication: BRONCHITIS
  4. TOPAMAX [Concomitant]
  5. PROZAC [Concomitant]
     Indication: DEPRESSION
  6. TRICOR [Concomitant]
     Indication: BLOOD CHOLESTEROL INCREASED
  7. AMITRIPTYLINE [Concomitant]
     Indication: DEPRESSION
     Dosage: 100 MILLIGRAM DAILY;
  8. METFORMIN [Concomitant]
     Indication: DIABETES MELLITUS
     Dosage: 1000 MILLIGRAM DAILY;
  9. ADVAIR [Concomitant]
     Indication: ASTHMA
  10. NEXIUM [Concomitant]
  11. NITROGLYCERIN [Concomitant]
     Route: 060
  12. JANUVIA [Concomitant]
     Indication: DIABETES MELLITUS
  13. NITROGLYCERIN [Concomitant]

REACTIONS (1)
  - Death [Fatal]
